FAERS Safety Report 25022498 (Version 1)
Quarter: 2025Q1

REPORT INFORMATION
  Report Type: Spontaneous
  Country: US (occurrence: US)
  Receive Date: 20250228
  Receipt Date: 20250228
  Transmission Date: 20250408
  Serious: No
  Sender: AMGEN
  Company Number: US-AMGEN-USASP2025037052

PATIENT
  Sex: Female

DRUGS (4)
  1. TAVNEOS [Suspect]
     Active Substance: AVACOPAN
     Indication: Anti-neutrophil cytoplasmic antibody positive vasculitis
     Dosage: 30 MILLIGRAM, BID (TWICE A DAY) /BY MOUTH
     Route: 048
     Dates: start: 202502, end: 202502
  2. PREDNISONE [Suspect]
     Active Substance: PREDNISONE
     Indication: Anti-neutrophil cytoplasmic antibody positive vasculitis
     Route: 065
  3. RITUXIMAB [Concomitant]
     Active Substance: RITUXIMAB
     Indication: Anti-neutrophil cytoplasmic antibody positive vasculitis
     Route: 040
  4. LASIX [Concomitant]
     Active Substance: FUROSEMIDE
     Indication: Anti-neutrophil cytoplasmic antibody positive vasculitis
     Route: 065

REACTIONS (7)
  - Weight decreased [Unknown]
  - Brain fog [Unknown]
  - Lethargy [Unknown]
  - Gait disturbance [Unknown]
  - Speech disorder [Unknown]
  - Feeling abnormal [Unknown]
  - Intentional product misuse [Unknown]

NARRATIVE: CASE EVENT DATE: 20250201
